FAERS Safety Report 20521382 (Version 1)
Quarter: 2022Q1

REPORT INFORMATION
  Report Type: Spontaneous
  Country: CA (occurrence: CA)
  Receive Date: 20220226
  Receipt Date: 20220226
  Transmission Date: 20220424
  Serious: Yes (Other)
  Sender: FDA-Public Use
  Company Number: None

PATIENT
  Age: 42 Year
  Sex: Female

DRUGS (6)
  1. METHOTREXATE [Suspect]
     Active Substance: METHOTREXATE
     Indication: Colitis ulcerative
     Route: 048
  2. FOLIC ACID [Concomitant]
     Active Substance: FOLIC ACID
  3. HYDROCORTISONE [Concomitant]
     Active Substance: HYDROCORTISONE
     Route: 048
  4. INFLIXIMAB [Concomitant]
     Active Substance: INFLIXIMAB
     Indication: Colitis ulcerative
     Route: 042
  5. MESALAMINE [Concomitant]
     Active Substance: MESALAMINE
  6. PENTASA [Concomitant]
     Active Substance: MESALAMINE
     Route: 048

REACTIONS (10)
  - Back pain [Unknown]
  - Bronchitis chronic [Unknown]
  - Condition aggravated [Unknown]
  - Cough [Unknown]
  - Drug ineffective [Unknown]
  - Faecal calprotectin increased [Unknown]
  - Radiculopathy [Unknown]
  - Spondylolisthesis [Unknown]
  - Therapy non-responder [Unknown]
  - Off label use [Unknown]
